FAERS Safety Report 7913053-0 (Version None)
Quarter: 2011Q4

REPORT INFORMATION
  Report Type: 
  Country: None (occurrence: None)
  Receive Date: 20111114
  Receipt Date: 20111104
  Transmission Date: 20120403
  Serious: Yes (Hospitalization)
  Sender: FDA-Public Use
  Company Number: US-BAYER-2011-109425

PATIENT
  Age: 42 Year
  Sex: Female

DRUGS (20)
  1. MULTI-VITAMIN [Concomitant]
     Dosage: UNK
  2. YAZ [Suspect]
  3. NITROFURANTOIN [Concomitant]
     Dosage: 50 MG, UNK
     Route: 048
  4. METHYLPHENIDATE [Concomitant]
     Dosage: 10 MG, UNK
     Route: 048
     Dates: start: 20090612
  5. MACRODANTIN [Concomitant]
  6. RITALIN [Concomitant]
  7. TYSABRI [Concomitant]
     Dosage: UNK
     Route: 042
     Dates: start: 20090301
  8. ORAL CONTRACEPTIVE NOS [Concomitant]
  9. LYRICA [Concomitant]
     Dosage: 100 MG, UNK
     Route: 048
  10. MIRAPEX [Concomitant]
     Dosage: 0.5 MG, UNK
     Route: 048
  11. PROTONIX [Concomitant]
     Route: 048
  12. AMOXICILLIN TRIHYDRATE W/CLAVULANTE POTASSIUM [Concomitant]
     Dosage: UNK
     Route: 048
     Dates: start: 20090612
  13. BUPROPION HYDROCHLORIDE [Concomitant]
     Dosage: 150 MG, UNK
     Route: 048
     Dates: start: 20090508
  14. YAZ [Suspect]
     Indication: CONTRACEPTION
     Dosage: UNK
     Dates: start: 20090201, end: 20090801
  15. YAZ [Suspect]
     Indication: PREMENSTRUAL SYNDROME
  16. MARIJUANA [Concomitant]
  17. AMANTADINE HCL [Concomitant]
     Dosage: 100 MG, UNK
     Route: 048
  18. PROZAC [Concomitant]
     Dosage: 20 MG, QD
     Route: 048
     Dates: start: 20090701
  19. MAXALT [Concomitant]
     Route: 048
  20. LEXAPRO [Concomitant]
     Dosage: 10 MG, UNK
     Route: 048
     Dates: start: 20090612

REACTIONS (5)
  - PALPITATIONS [None]
  - DIZZINESS [None]
  - HEART RATE IRREGULAR [None]
  - ANXIETY [None]
  - PULMONARY EMBOLISM [None]
